FAERS Safety Report 8558230-3 (Version None)
Quarter: 2012Q3

REPORT INFORMATION
  Report Type: 
  Country: None (occurrence: None)
  Receive Date: 20120801
  Receipt Date: 20120726
  Transmission Date: 20120928
  Serious: Yes (Other)
  Sender: FDA-Public Use
  Company Number: PHHY2012US064469

PATIENT
  Age: 28 Year
  Sex: Female

DRUGS (5)
  1. ESCITALOPRAM [Concomitant]
     Dosage: UNK
  2. NAPROXEN [Concomitant]
  3. TRAMADOL HYDROCHLORIDE [Suspect]
     Dosage: 600-800 MG PER DAY
  4. CYCLOBENZAPRINE [Concomitant]
  5. OMEPRAZOLE [Concomitant]

REACTIONS (6)
  - COMPLEX PARTIAL SEIZURES [None]
  - AMNESIA [None]
  - BLOOD GLUCOSE INCREASED [None]
  - DRUG SCREEN FALSE POSITIVE [None]
  - TACHYCARDIA [None]
  - CONFUSIONAL STATE [None]
